FAERS Safety Report 12947933 (Version 2)
Quarter: 2016Q4

REPORT INFORMATION
  Report Type: Spontaneous
  Country: FI (occurrence: ES)
  Receive Date: 20161116
  Receipt Date: 20161228
  Transmission Date: 20170207
  Serious: Yes (Hospitalization, Other)
  Sender: FDA-Public Use
  Company Number: FI-BAYER-2016-218139

PATIENT
  Age: 25 Year
  Sex: Female

DRUGS (3)
  1. QLAIRA [Suspect]
     Active Substance: DIENOGEST\ESTRADIOL VALERATE
     Route: 048
  2. JAYDESS [Suspect]
     Active Substance: LEVONORGESTREL
     Indication: CONTRACEPTION
     Dosage: 14 MCG/24HR, CONT
     Route: 015
     Dates: start: 201601
  3. YASMINELLE [Suspect]
     Active Substance: DROSPIRENONE
     Route: 048

REACTIONS (20)
  - Haemorrhage in pregnancy [None]
  - Fallopian tube disorder [Recovered/Resolved]
  - Abdominal pain [Recovered/Resolved]
  - Ovarian cyst [Recovered/Resolved]
  - Abdominal pain [Unknown]
  - Menstruation irregular [Recovered/Resolved]
  - Ovarian cyst [Recovered/Resolved]
  - Intra-abdominal fluid collection [Recovered/Resolved]
  - Mood altered [None]
  - Adverse event [None]
  - Ectopic pregnancy with contraceptive device [Recovered/Resolved]
  - Drug ineffective [Unknown]
  - Device difficult to use [Not Recovered/Not Resolved]
  - Procedural pain [None]
  - Uterine infection [Unknown]
  - Device issue [None]
  - Cyst [Recovered/Resolved]
  - Shock [Recovered/Resolved]
  - Pain [Unknown]
  - Hypomenorrhoea [Recovered/Resolved]

NARRATIVE: CASE EVENT DATE: 201608
